FAERS Safety Report 10392718 (Version 1)
Quarter: 2014Q3

REPORT INFORMATION
  Report Type: Spontaneous
  Country: US (occurrence: None)
  Receive Date: 20140815
  Receipt Date: 20140815
  Transmission Date: 20150326
  Serious: Yes (Other)
  Sender: FDA-Public Use
  Company Number: C-14-100

PATIENT
  Age: 50 Year
  Sex: Female
  Weight: 60.78 kg

DRUGS (1)
  1. PHENTERMINE [Suspect]
     Active Substance: PHENTERMINE
     Indication: WEIGHT DECREASED
     Route: 048
     Dates: start: 201301, end: 20140721

REACTIONS (4)
  - Fatigue [None]
  - Seizure like phenomena [None]
  - Dizziness [None]
  - Drug ineffective [None]
